FAERS Safety Report 8533415 (Version 3)
Quarter: 2013Q1

REPORT INFORMATION
  Report Type: Spontaneous
  Country: US (occurrence: US)
  Receive Date: 20120427
  Receipt Date: 20130201
  Transmission Date: 20140127
  Serious: Yes (Hospitalization, Other)
  Sender: FDA-Public Use
  Company Number: US-ELI_LILLY_AND_COMPANY-US201110007921

PATIENT
  Age: 66 Year
  Sex: Female

DRUGS (2)
  1. FORTEO [Suspect]
     Indication: OSTEOPOROSIS
     Dosage: 20 UG, QD
  2. FORTEO [Suspect]
     Dosage: 20 UG, QD

REACTIONS (15)
  - Bronchitis [Unknown]
  - Bronchitis [Unknown]
  - Atrial fibrillation [Unknown]
  - Poor peripheral circulation [Unknown]
  - Blood pressure decreased [Unknown]
  - Haemorrhage [Unknown]
  - Alopecia [Unknown]
  - Influenza [Unknown]
  - Arterial disorder [Unknown]
  - Asthenia [Unknown]
  - Confusional state [Unknown]
  - Oedema peripheral [Unknown]
  - Joint swelling [Unknown]
  - Oedema [Unknown]
  - Gait disturbance [Unknown]
